FAERS Safety Report 4384416-8 (Version None)
Quarter: 2004Q2

REPORT INFORMATION
  Report Type: 
  Country: None (occurrence: None)
  Receive Date: 20040624
  Receipt Date: 20040612
  Transmission Date: 20050107
  Serious: Yes (Other)
  Sender: FDA-Public Use
  Company Number: GB-GLAXOSMITHKLINE-B0335535A

PATIENT
  Age: 44 Year
  Sex: Male
  Weight: 72.5 kg

DRUGS (2)
  1. ZYBAN [Suspect]
     Indication: TOBACCO ABUSE
     Dosage: 1TAB SEE DOSAGE TEXT
     Route: 048
     Dates: start: 20040427, end: 20040517
  2. NICORETTE [Concomitant]
     Route: 065
     Dates: start: 20040525

REACTIONS (2)
  - RASH [None]
  - SKIN DESQUAMATION [None]
